FAERS Safety Report 9669964 (Version 1)
Quarter: 2013Q4

REPORT INFORMATION
  Report Type: Spontaneous
  Country: US (occurrence: US)
  Receive Date: 20131105
  Receipt Date: 20131105
  Transmission Date: 20140711
  Serious: Yes (Other)
  Sender: FDA-Public Use
  Company Number: US-BAYER-2013-133293

PATIENT
  Age: 46 Year
  Sex: Female

DRUGS (1)
  1. SAFYRAL [Suspect]
     Indication: MENORRHAGIA
     Dosage: UNK UNK, QD
     Dates: start: 20130628, end: 2013

REACTIONS (1)
  - Deep vein thrombosis [Not Recovered/Not Resolved]
